FAERS Safety Report 8773114 (Version 1)
Quarter: 2012Q4

REPORT INFORMATION
  Report Type: 
  Country: US (occurrence: US)
  Receive Date: 20120907
  Receipt Date: 20120907
  Transmission Date: 20130627
  Serious: Yes (Hospitalization)
  Sender: FDA-Public Use
  Company Number: PHHY2012US075475

PATIENT
  Age: 52 Year
  Sex: Male

DRUGS (3)
  1. SERTRALINE [Suspect]
     Indication: DEPRESSION
     Dosage: 200 mg, UNK
  2. SERTRALINE [Suspect]
     Dosage: 400 mg, UNK
  3. SERTRALINE [Suspect]
     Dosage: 200 mg, UNK

REACTIONS (10)
  - Diffuse alveolar damage [Recovered/Resolved]
  - Dyspnoea [Recovered/Resolved]
  - Cough [Recovered/Resolved]
  - Cyanosis central [Recovered/Resolved]
  - Rales [Recovered/Resolved]
  - Hypoxia [Recovered/Resolved]
  - Hyperplasia [Recovered/Resolved]
  - Pulmonary fibrosis [Recovered/Resolved]
  - Pulmonary oedema [Recovered/Resolved]
  - Respiratory failure [Recovered/Resolved]
